FAERS Safety Report 8816447 (Version 1)
Quarter: 2012Q4

REPORT INFORMATION
  Report Type: Spontaneous
  Country: US (occurrence: None)
  Receive Date: 20120928
  Receipt Date: 20120928
  Transmission Date: 20130627
  Serious: Yes (Other)
  Sender: FDA-Public Use
  Company Number: None

PATIENT
  Age: 30 Year
  Sex: Female
  Weight: 77.11 kg

DRUGS (1)
  1. LEVAQUIN [Suspect]
     Indication: BRONCHITIS
     Dosage: 1 pill perday Buccal
     Route: 002
     Dates: start: 20120926, end: 20120926

REACTIONS (8)
  - Nausea [None]
  - Diarrhoea [None]
  - Headache [None]
  - Dizziness [None]
  - Neck pain [None]
  - Vomiting [None]
  - Sleep disorder [None]
  - Erythema [None]
